FAERS Safety Report 17369026 (Version 1)
Quarter: 2020Q1

REPORT INFORMATION
  Report Type: Spontaneous
  Country: US (occurrence: US)
  Receive Date: 20200120
  Receipt Date: 20200120
  Transmission Date: 20200409
  Serious: No
  Sender: FDA-Public Use
  Company Number: None

PATIENT
  Age: 59 Year
  Sex: Female

DRUGS (1)
  1. TALTZ [Suspect]
     Active Substance: IXEKIZUMAB
     Dosage: ?          OTHER
     Route: 058
     Dates: start: 201912

REACTIONS (5)
  - Arthralgia [None]
  - Therapy cessation [None]
  - Joint swelling [None]
  - Product distribution issue [None]
  - Frustration tolerance decreased [None]

NARRATIVE: CASE EVENT DATE: 20200120
